FAERS Safety Report 8883027 (Version 1)
Quarter: 2012Q4

REPORT INFORMATION
  Report Type: Report from Study
  Country: GR (occurrence: GR)
  Receive Date: 20121102
  Receipt Date: 20121102
  Transmission Date: 20130627
  Serious: Yes (Hospitalization)
  Sender: FDA-Public Use
  Company Number: GR-VERTEX PHARMACEUTICAL INC.-000000000000000806

PATIENT
  Age: 63 Year
  Sex: Female
  Weight: 64 kg

DRUGS (3)
  1. VX-950 [Suspect]
     Indication: HEPATITIS C
     Dosage: Dosage Form: Tablet
     Route: 048
     Dates: start: 20120403, end: 20120527
  2. PEGYLATED INTERFERON [Suspect]
     Indication: HEPATITIS C
     Dosage: Dosage Form: Injection
     Route: 058
     Dates: start: 20120403
  3. RIBAVIRIN [Suspect]
     Indication: HEPATITIS C
     Dosage: Dosage Form: Tablet
     Route: 048
     Dates: start: 20120403

REACTIONS (4)
  - Pyrexia [Recovered/Resolved]
  - Alanine aminotransferase increased [Recovered/Resolved]
  - Drug reaction with eosinophilia and systemic symptoms [Recovered/Resolved]
  - Face oedema [Recovered/Resolved]
